FAERS Safety Report 7578302-X (Version None)
Quarter: 2011Q2

REPORT INFORMATION
  Report Type: 
  Country: None (occurrence: None)
  Receive Date: 20110628
  Receipt Date: 20110620
  Transmission Date: 20111010
  Serious: Yes (Death)
  Sender: FDA-Public Use
  Company Number: IT-CELGENEUS-083-21880-11061177

PATIENT
  Age: 61 Year
  Sex: Male

DRUGS (2)
  1. REVLIMID [Suspect]
     Route: 048
  2. WHOLE BLOOD [Concomitant]
     Dosage: .1333 IU (INTERNATIONAL UNIT)
     Route: 051

REACTIONS (1)
  - ACUTE MYELOID LEUKAEMIA [None]
